FAERS Safety Report 5331198-9 (Version None)
Quarter: 2007Q2

REPORT INFORMATION
  Report Type: 
  Country: None (occurrence: None)
  Receive Date: 20070522
  Receipt Date: 20070425
  Transmission Date: 20071010
  Serious: No
  Sender: FDA-Public Use
  Company Number: US-JNJFOC-20070405700

PATIENT
  Age: 30 Year
  Sex: Male

DRUGS (1)
  1. INVEGA [Suspect]
     Indication: SCHIZOPHRENIA
     Dosage: TAKEN AT BEDTIME
     Route: 048

REACTIONS (1)
  - PSYCHOTIC DISORDER [None]
